FAERS Safety Report 17796871 (Version 1)
Quarter: 2020Q2

REPORT INFORMATION
  Report Type: Other
  Country: FR (occurrence: FR)
  Receive Date: 20200518
  Receipt Date: 20200518
  Transmission Date: 20200714
  Serious: Yes (Hospitalization)
  Sender: FDA-Public Use
  Company Number: FR-CADILA HEALTHCARE LIMITED-FR-ZYDUS-050721

PATIENT

DRUGS (5)
  1. VALACICLOVIR [Suspect]
     Active Substance: VALACYCLOVIR HYDROCHLORIDE
     Indication: SUICIDE ATTEMPT
     Dosage: 1500 MILLIGRAM, SINGLE
     Route: 048
     Dates: start: 20200406, end: 20200406
  2. PAROXETINE. [Suspect]
     Active Substance: PAROXETINE
     Indication: SUICIDE ATTEMPT
     Dosage: 120 MILLIGRAM, SINGLE
     Route: 048
     Dates: start: 20200406, end: 20200406
  3. LAROXYL [Suspect]
     Active Substance: AMITRIPTYLINE HYDROCHLORIDE
     Indication: SUICIDE ATTEMPT
     Dosage: 15 DOSAGE FORM, SINGLE
     Route: 048
     Dates: start: 20200406, end: 20200406
  4. MIRTAZAPINE. [Suspect]
     Active Substance: MIRTAZAPINE
     Indication: SUICIDE ATTEMPT
     Dosage: 45 MILLIGRAM, SINGLE
     Route: 048
     Dates: start: 20200406, end: 20200406
  5. SERESTA [Suspect]
     Active Substance: OXAZEPAM
     Indication: SUICIDE ATTEMPT
     Dosage: 5 DOSAGE FORM, SINGLE
     Route: 048
     Dates: start: 20200406, end: 20200406

REACTIONS (5)
  - Dysarthria [Recovered/Resolved]
  - Somnolence [Recovered/Resolved]
  - Tachycardia [Recovered/Resolved]
  - Agitation [Recovered/Resolved]
  - Confusional state [Recovered/Resolved]

NARRATIVE: CASE EVENT DATE: 20200406
